FAERS Safety Report 4716384-0 (Version None)
Quarter: 2005Q3

REPORT INFORMATION
  Report Type: 
  Country: None (occurrence: None)
  Receive Date: 20050714
  Receipt Date: 20050630
  Transmission Date: 20060218
  Serious: Yes (Other)
  Sender: FDA-Public Use
  Company Number: 2005-DE-02528GD

PATIENT

DRUGS (5)
  1. MORPHINE [Suspect]
     Indication: CORONARY ARTERY SURGERY
     Dosage: SEE IMAGE/ONCE
  2. HEPARIN [Concomitant]
  3. NARCOTIC [Concomitant]
  4. KETOROLAC [Concomitant]
  5. PROTAMIN (PROTAMINE) [Concomitant]

REACTIONS (2)
  - CEREBROVASCULAR ACCIDENT [None]
  - POST PROCEDURAL COMPLICATION [None]
